FAERS Safety Report 4538027-1 (Version None)
Quarter: 2004Q4

REPORT INFORMATION
  Report Type: 
  Country: None (occurrence: None)
  Receive Date: 20041226
  Receipt Date: 20040921
  Transmission Date: 20050328
  Serious: Yes (Hospitalization)
  Sender: FDA-Public Use
  Company Number: FR-ABBOTT-04P-056-0274322-00

PATIENT
  Sex: Male

DRUGS (1)
  1. VALPROATE SODIUM [Suspect]
     Indication: EPILEPSY
     Route: 048
     Dates: start: 20040630

REACTIONS (12)
  - ABDOMINAL PAIN [None]
  - ANOREXIA [None]
  - CAECITIS [None]
  - CONSTIPATION [None]
  - CONVULSION [None]
  - FATIGUE [None]
  - FREQUENT BOWEL MOVEMENTS [None]
  - ILEITIS [None]
  - LOOSE STOOLS [None]
  - LYMPHADENITIS [None]
  - PYREXIA [None]
  - VOMITING [None]
